FAERS Safety Report 12416673 (Version 1)
Quarter: 2016Q2

REPORT INFORMATION
  Report Type: Spontaneous
  Country: CN (occurrence: CN)
  Receive Date: 20160530
  Receipt Date: 20160530
  Transmission Date: 20160815
  Serious: Yes (Other)
  Sender: FDA-Public Use
  Company Number: CN-JNJFOC-20140812354

PATIENT

DRUGS (2)
  1. RISPERDAL [Suspect]
     Active Substance: RISPERIDONE
     Indication: SCHIZOPHRENIA
     Route: 048
  2. RISPERDAL [Suspect]
     Active Substance: RISPERIDONE
     Indication: SCHIZOPHRENIA
     Dosage: DOSE:APPROXIMATELY 3-6 MG/DAY
     Route: 048

REACTIONS (4)
  - Myocardial necrosis marker increased [Unknown]
  - Blood glucose increased [Unknown]
  - Hormone level abnormal [Unknown]
  - Lipids increased [Unknown]
